FAERS Safety Report 7339201-1 (Version None)
Quarter: 2011Q1

REPORT INFORMATION
  Report Type: 
  Country: None (occurrence: None)
  Receive Date: 20110308
  Receipt Date: 20110218
  Transmission Date: 20110831
  Serious: Yes (Hospitalization, Other)
  Sender: FDA-Public Use
  Company Number: PHHY2011DE16323

PATIENT
  Sex: Female
  Weight: 72 kg

DRUGS (4)
  1. NOVALGIN                                /SCH/ [Concomitant]
     Dosage: UNK
     Dates: start: 20110201
  2. ZOMETA [Suspect]
     Indication: BONE DISORDER
     Dosage: 4 MG, UNK
     Route: 042
     Dates: start: 20100311
  3. DICLOFENAC [Concomitant]
     Dosage: UNK
  4. DICLOFENAC [Concomitant]
     Dosage: 150 MG, UNK
     Route: 048
     Dates: start: 20110201

REACTIONS (5)
  - METASTASES TO BONE [None]
  - PAIN [None]
  - GENERAL PHYSICAL HEALTH DETERIORATION [None]
  - FRACTURE [None]
  - NEOPLASM MALIGNANT [None]
